FAERS Safety Report 7794414-X (Version None)
Quarter: 2011Q4

REPORT INFORMATION
  Report Type: 
  Country: None (occurrence: None)
  Receive Date: 20111004
  Receipt Date: 20111004
  Transmission Date: 20120403
  Serious: Yes (Disabling, Other)
  Sender: FDA-Public Use
  Company Number: None

PATIENT
  Age: 49 Year
  Sex: Female
  Weight: 81.193 kg

DRUGS (1)
  1. LIPITOR [Suspect]
     Indication: BLOOD CHOLESTEROL
     Route: 048
     Dates: start: 20110710, end: 20110911

REACTIONS (7)
  - OEDEMA PERIPHERAL [None]
  - MOVEMENT DISORDER [None]
  - GAIT DISTURBANCE [None]
  - ABDOMINAL PAIN UPPER [None]
  - MYALGIA [None]
  - FATIGUE [None]
  - PAIN [None]
